FAERS Safety Report 8304874 (Version 5)
Quarter: 2013Q3

REPORT INFORMATION
  Report Type: Report from Study
  Country: US (occurrence: US)
  Receive Date: 20111221
  Receipt Date: 20130902
  Transmission Date: 20140515
  Serious: Yes (Other)
  Sender: FDA-Public Use
  Company Number: PHEH2011US009971

PATIENT
  Age: 73 Year
  Sex: Female
  Weight: 79 kg

DRUGS (5)
  1. GLEEVEC [Suspect]
     Indication: CHRONIC MYELOID LEUKAEMIA
     Dosage: 200 MG, DAILY
     Route: 048
     Dates: start: 201011
  2. GLEEVEC [Suspect]
     Dosage: 600 MG, QD (ONE AND A HALF TABLET)
     Route: 048
     Dates: start: 20101215
  3. ZYRTEC [Concomitant]
     Indication: SEASONAL ALLERGY
     Dosage: 10 MG, DAILY
     Route: 048
  4. ZOLOFT [Concomitant]
     Dosage: 100 MG, DAILY
     Route: 048
     Dates: start: 2001
  5. CENTRUM SILVER [Concomitant]
     Dosage: UNK UKN, UNK

REACTIONS (8)
  - Fall [Recovering/Resolving]
  - Ligament sprain [Unknown]
  - Chronic myeloid leukaemia [Not Recovered/Not Resolved]
  - Malignant neoplasm progression [Not Recovered/Not Resolved]
  - No therapeutic response [Recovered/Resolved]
  - Pain in extremity [Unknown]
  - Contusion [Unknown]
  - Local swelling [Recovering/Resolving]
